FAERS Safety Report 6486693-6 (Version None)
Quarter: 2009Q4

REPORT INFORMATION
  Report Type: 
  Country: None (occurrence: None)
  Receive Date: 20091210
  Receipt Date: 20091126
  Transmission Date: 20100525
  Serious: Yes (Other)
  Sender: FDA-Public Use
  Company Number: ES-JNJFOC-20090201999

PATIENT
  Sex: Male

DRUGS (11)
  1. REMICADE [Suspect]
     Indication: RHEUMATOID ARTHRITIS
     Route: 042
     Dates: start: 20010627, end: 20050502
  2. CORTICOID [Concomitant]
  3. LEFLUNOMIDE [Concomitant]
  4. ACFOL [Concomitant]
  5. CALCIUM + VITAMIN D [Concomitant]
  6. ANTICOAGULENT [Concomitant]
  7. STATIN [Concomitant]
  8. IPRATROPIUM BROMURE [Concomitant]
  9. SALBUTAMOLE [Concomitant]
  10. CALCITONIN [Concomitant]
  11. LANSOPRAZOLE [Concomitant]

REACTIONS (2)
  - ADVERSE EVENT [None]
  - REFRACTORY ANAEMIA WITH RINGED SIDEROBLASTS [None]
